FAERS Safety Report 19363315 (Version 1)
Quarter: 2021Q2

REPORT INFORMATION
  Report Type: Report from Study
  Country: FR (occurrence: FR)
  Receive Date: 20210602
  Receipt Date: 20210602
  Transmission Date: 20210717
  Serious: Yes (Other)
  Sender: FDA-Public Use
  Company Number: FR-ROCHE-2839731

PATIENT
  Age: 68 Year
  Sex: Male
  Weight: 61 kg

DRUGS (8)
  1. PRIMPERAN [Concomitant]
     Active Substance: METOCLOPRAMIDE HYDROCHLORIDE
     Dates: start: 20201006
  2. DOLIPRANE [Concomitant]
     Active Substance: ACETAMINOPHEN
     Route: 048
     Dates: start: 20200820
  3. BICARBONATE [Concomitant]
     Active Substance: SODIUM BICARBONATE
     Indication: MUCOSAL INFLAMMATION
     Dates: start: 20200825
  4. OBINUTUZUMAB. [Suspect]
     Active Substance: OBINUTUZUMAB
     Indication: COLORECTAL CANCER
     Dosage: OBINUTUZUMAB WILL BE ADMINISTERED BY INTRAVENOUS (IV) INFUSION AS EITHER A SPLIT OR SINGLE DOSE APPR
     Route: 042
     Dates: start: 20200805
  5. MACROGOL [Concomitant]
     Active Substance: POLYETHYLENE GLYCOLS
     Indication: CONSTIPATION
     Dates: start: 20200922
  6. ATEZOLIZUMAB. [Suspect]
     Active Substance: ATEZOLIZUMAB
     Indication: COLORECTAL CANCER
     Dosage: ON 03/DEC/2020 2:27 PM PATIENT RECEIVED MOST RECENT DOSE OF STUDY DRUG PRIOR TO SAE. END DATE OF MOS
     Route: 042
     Dates: start: 20200818
  7. PRIMPERAN [Concomitant]
     Active Substance: METOCLOPRAMIDE HYDROCHLORIDE
     Indication: NAUSEA
     Dates: start: 20200822
  8. RO6958688 (T?CELL BISPECIFIC MONOCLONAL ANTIBODY) [Suspect]
     Active Substance: CIBISATAMAB
     Indication: COLORECTAL CANCER
     Dosage: ON 03/DEC/2020 2:27 PM PATIENT RECEIVED MOST RECENT DOSE OF STUDY DRUG PRIOR TO SAE. END DATE OF MOS
     Route: 042
     Dates: start: 20200818

REACTIONS (1)
  - Thrombocytopenia [Not Recovered/Not Resolved]

NARRATIVE: CASE EVENT DATE: 20210518
